FAERS Safety Report 14241834 (Version 3)
Quarter: 2018Q1

REPORT INFORMATION
  Report Type: Spontaneous
  Country: CN (occurrence: CN)
  Receive Date: 20171201
  Receipt Date: 20180302
  Transmission Date: 20180508
  Serious: Yes (Death)
  Sender: FDA-Public Use
  Company Number: CN-ORPHAN EUROPE-2036444

PATIENT
  Age: 12 Month
  Sex: Male

DRUGS (5)
  1. VITAMIN B6 [Concomitant]
     Active Substance: PYRIDOXINE HYDROCHLORIDE
  2. CYSTADANE [Suspect]
     Active Substance: BETAINE
     Indication: METHYLMALONIC ACIDURIA
     Route: 048
  3. VITAMIN B12 [Concomitant]
     Active Substance: CYANOCOBALAMIN
  4. LEVOCARNITINE. [Concomitant]
     Active Substance: LEVOCARNITINE
  5. FOLINIC ACID [Concomitant]
     Active Substance: LEUCOVORIN

REACTIONS (2)
  - Cardiac failure [Fatal]
  - Pulmonary hypertension [Fatal]
